FAERS Safety Report 13054292 (Version 2)
Quarter: 2016Q4

REPORT INFORMATION
  Report Type: Report from Study
  Country: CA (occurrence: CA)
  Receive Date: 20161222
  Receipt Date: 20161229
  Transmission Date: 20170207
  Serious: Yes (Other)
  Sender: FDA-Public Use
  Company Number: CA-JNJFOC-20161128917

PATIENT
  Age: 4 Year
  Sex: Male
  Weight: 17 kg

DRUGS (1)
  1. REMICADE [Suspect]
     Active Substance: INFLIXIMAB
     Indication: COLITIS ULCERATIVE
     Route: 042
     Dates: start: 20160608

REACTIONS (6)
  - Off label use [Unknown]
  - Diarrhoea [Unknown]
  - Product use issue [Unknown]
  - Haematochezia [Unknown]
  - Treatment failure [Unknown]
  - Inflammation [Unknown]

NARRATIVE: CASE EVENT DATE: 20160608
